FAERS Safety Report 24122442 (Version 1)
Quarter: 2024Q3

REPORT INFORMATION
  Report Type: Spontaneous
  Country: GB (occurrence: GB)
  Receive Date: 20240723
  Receipt Date: 20240723
  Transmission Date: 20241016
  Serious: Yes (Other)
  Sender: AUROBINDO
  Company Number: GB-MHRA-TPP12258234C15588789YC1720713132624

PATIENT
  Age: 44 Year
  Sex: Male
  Weight: 81 kg

DRUGS (13)
  1. AMLODIPINE BESYLATE [Suspect]
     Active Substance: AMLODIPINE BESYLATE
     Indication: Ill-defined disorder
     Dosage: 5 MILLIGRAM, ONCE A DAY
     Route: 065
     Dates: start: 20240215
  2. LANSOPRAZOLE [Concomitant]
     Active Substance: LANSOPRAZOLE
     Indication: Ill-defined disorder
     Dosage: 1 DOSAGE FORM, ONCE A DAY(TAKE ONE CAPSULE ONCE A DAY TO HELP PREVENT IND... )
     Route: 065
     Dates: start: 20240520
  3. PREDNISOLONE [Concomitant]
     Active Substance: PREDNISOLONE
     Indication: Ill-defined disorder
     Dosage: 6 DOSAGE FORM, ONCE A DAY(FOR 3 DAYS)
     Route: 065
     Dates: start: 20240520
  4. VENTOLIN [Concomitant]
     Active Substance: ALBUTEROL SULFATE
     Indication: Ill-defined disorder
     Dosage: UNK,(INHALE 2 DOSES AS NEEDED)
     Route: 065
     Dates: start: 20220712
  5. AZELASTINE [Concomitant]
     Active Substance: AZELASTINE\AZELASTINE HYDROCHLORIDE
     Indication: Ill-defined disorder
     Dosage: UNK UNK, ONCE A DAY(TAKE 2 PUFFS EACH NOSTRIL ONCE A DAY AS PER ALL...)
     Route: 065
     Dates: start: 20231222
  6. AMLODIPINE [Concomitant]
     Active Substance: AMLODIPINE BESYLATE
     Indication: Ill-defined disorder
     Dosage: 1 DOSAGE FORM, ONCE A DAY
     Route: 065
     Dates: start: 20240215
  7. EPIPEN [Concomitant]
     Active Substance: EPINEPHRINE
     Indication: Ill-defined disorder
     Dosage: UNK(FOR PATIENTS WEIGHING GREATER THAN 25KG. USE AS.)
     Route: 065
     Dates: start: 20240215
  8. FAMOTIDINE [Concomitant]
     Active Substance: FAMOTIDINE
     Indication: Ill-defined disorder
     Dosage: 20 MILLIGRAM, DAILY(TAKE 20MG DAILY (AS PER ALLERGY SPECIALIST))
     Route: 065
     Dates: start: 20240215
  9. FEXOFENADINE [Concomitant]
     Active Substance: FEXOFENADINE HYDROCHLORIDE
     Indication: Ill-defined disorder
     Dosage: UNK UNK, TWO TIMES A DAY(TAKE ONE TWICE DAILY AS ADVISED BY SPECALIST)
     Route: 065
     Dates: start: 20240215
  10. TRANEXAMIC ACID [Concomitant]
     Active Substance: TRANEXAMIC ACID
     Indication: Ill-defined disorder
     Dosage: UNK,(TAKE TWO TABLETS AND IF NECESSARY REPEAT IN 6 H...)
     Route: 065
     Dates: start: 20240215
  11. BECLOMETHASONE DIPROPIONATE\FORMOTEROL FUMARATE\GLYCOPYRROLATE [Concomitant]
     Active Substance: BECLOMETHASONE DIPROPIONATE\FORMOTEROL FUMARATE\GLYCOPYRROLATE
     Indication: Ill-defined disorder
     Dosage: UNK UNK, TWO TIMES A DAY(INHALE 2 PUFFS TWICE A DAY FOR BREATHLESSNESS A...)
     Route: 065
     Dates: start: 20240227
  12. SOPROBEC [Concomitant]
     Indication: Ill-defined disorder
     Dosage: UNK UNK, TWO TIMES A DAY(INHALE TWO PUFFS TWICE A DAY TO HELP PREVENT BR...)
     Route: 065
     Dates: start: 20240524
  13. BENDROFLUMETHIAZIDE [Concomitant]
     Active Substance: BENDROFLUMETHIAZIDE
     Indication: Ill-defined disorder
     Dosage: 1 DOSAGE FORM, EVERY MORNING(TAKE ONE TABLET EACH MORNING TO HELP LOWER BLOO...)
     Route: 065
     Dates: start: 20240711

REACTIONS (2)
  - Joint swelling [Unknown]
  - Oedema peripheral [Recovered/Resolved]
